FAERS Safety Report 10092264 (Version 1)
Quarter: 2014Q2

REPORT INFORMATION
  Report Type: Spontaneous
  Country: US (occurrence: US)
  Receive Date: 20140421
  Receipt Date: 20140421
  Transmission Date: 20141212
  Serious: No
  Sender: FDA-Public Use
  Company Number: US-SANOFI-AVENTIS-2013SA048165

PATIENT
  Age: 84 Year
  Sex: Female
  Weight: 52.16 kg

DRUGS (1)
  1. ALLEGRA [Suspect]
     Indication: HYPERSENSITIVITY
     Route: 048
     Dates: start: 20130510, end: 20130518

REACTIONS (5)
  - Diarrhoea [Recovered/Resolved]
  - Muscle spasms [Not Recovered/Not Resolved]
  - Eye swelling [Recovered/Resolved]
  - Back pain [Unknown]
  - Drug ineffective [Unknown]
